FAERS Safety Report 23053042 (Version 2)
Quarter: 2023Q4

REPORT INFORMATION
  Report Type: Spontaneous
  Country: IL (occurrence: None)
  Receive Date: 20231011
  Receipt Date: 20231103
  Transmission Date: 20240110
  Serious: Yes (Hospitalization)
  Sender: FDA-Public Use
  Company Number: IL-ROCHE-3433720

PATIENT
  Age: 37 Year
  Sex: Male

DRUGS (3)
  1. HEMLIBRA [Suspect]
     Active Substance: EMICIZUMAB-KXWH
     Indication: Haemophilia A with anti factor VIII
     Route: 058
     Dates: start: 20220627
  2. ANTIHEMOPHILIC FACTOR HUMAN [Concomitant]
     Active Substance: ANTIHEMOPHILIC FACTOR HUMAN
  3. KEPPRA [Concomitant]
     Active Substance: LEVETIRACETAM

REACTIONS (2)
  - Cerebral haemorrhage [Recovering/Resolving]
  - Cerebral cavernous malformation [Recovering/Resolving]

NARRATIVE: CASE EVENT DATE: 20230825
